FAERS Safety Report 18053972 (Version 1)
Quarter: 2020Q3

REPORT INFORMATION
  Report Type: Spontaneous
  Country: US (occurrence: US)
  Receive Date: 20200722
  Receipt Date: 20200722
  Transmission Date: 20201103
  Serious: No
  Sender: FDA-Public Use
  Company Number: US-PFIZER INC-2020270321

PATIENT
  Sex: Female

DRUGS (1)
  1. DEPO?PROVERA [Suspect]
     Active Substance: MEDROXYPROGESTERONE ACETATE
     Dosage: UNK

REACTIONS (7)
  - Vitamin D decreased [Unknown]
  - Hormone level abnormal [Unknown]
  - Screaming [Unknown]
  - Tooth loss [Unknown]
  - Bone loss [Unknown]
  - Crying [Unknown]
  - Product complaint [Unknown]
